FAERS Safety Report 8020942-8 (Version None)
Quarter: 2011Q4

REPORT INFORMATION
  Report Type: 
  Country: None (occurrence: None)
  Receive Date: 20111229
  Receipt Date: 20111229
  Transmission Date: 20120403
  Serious: Yes (Disabling)
  Sender: FDA-Public Use
  Company Number: None

PATIENT
  Age: 68 Year
  Sex: Female
  Weight: 68.0396 kg

DRUGS (1)
  1. BONIVA [Suspect]
     Indication: OSTEOPOROSIS POSTMENOPAUSAL
     Dosage: 150 MG 1 TABLET ONCE A MONTH ORAL
     Route: 048
     Dates: start: 20090512

REACTIONS (4)
  - TOOTHACHE [None]
  - BONE DISORDER [None]
  - GINGIVAL PAIN [None]
  - DENTAL CARIES [None]
